FAERS Safety Report 17428892 (Version 1)
Quarter: 2020Q1

REPORT INFORMATION
  Report Type: Spontaneous
  Country: US (occurrence: US)
  Receive Date: 20200214
  Receipt Date: 20200214
  Transmission Date: 20200409
  Serious: Yes (Hospitalization)
  Sender: FDA-Public Use
  Company Number: None

PATIENT
  Age: 18 Year
  Sex: Female

DRUGS (5)
  1. TRI-LO [Concomitant]
  2. PANTOPRAZOLE [Concomitant]
     Active Substance: PANTOPRAZOLE
  3. METRONIDAZOL [Concomitant]
     Active Substance: METRONIDAZOLE
  4. XELJANZ [Suspect]
     Active Substance: TOFACITINIB CITRATE
     Indication: COLITIS ULCERATIVE
     Route: 048
     Dates: start: 20200124
  5. VIT D [Concomitant]
     Active Substance: VITAMIN D NOS

REACTIONS (2)
  - Colitis ulcerative [None]
  - Condition aggravated [None]

NARRATIVE: CASE EVENT DATE: 20200108
